FAERS Safety Report 25264027 (Version 2)
Quarter: 2025Q3

REPORT INFORMATION
  Report Type: Report from Study
  Country: US (occurrence: US)
  Receive Date: 20250502
  Receipt Date: 20250809
  Transmission Date: 20251021
  Serious: Yes (Hospitalization, Other)
  Sender: ALEXION PHARMACEUTICALS
  Company Number: US-AstraZeneca-CH-00856964A

PATIENT
  Age: 57 Year
  Sex: Female
  Weight: 149.23 kg

DRUGS (1)
  1. TEZEPELUMAB [Suspect]
     Active Substance: TEZEPELUMAB
     Indication: Asthma

REACTIONS (23)
  - Acute kidney injury [Recovering/Resolving]
  - Asthma [Unknown]
  - Abdominal discomfort [Unknown]
  - Dyspnoea [Unknown]
  - Pneumonia [Unknown]
  - Pulmonary embolism [Unknown]
  - Loss of consciousness [Unknown]
  - Nephrolithiasis [Unknown]
  - Wheezing [Recovering/Resolving]
  - Dyspnoea [Recovering/Resolving]
  - Chest discomfort [Unknown]
  - Blood pressure fluctuation [Unknown]
  - Pleuritic pain [Unknown]
  - Chest pain [Unknown]
  - COVID-19 [Unknown]
  - Spinal osteoarthritis [Unknown]
  - Tonsillectomy [Unknown]
  - Stent removal [Unknown]
  - Pyrexia [Unknown]
  - Sinusitis [Unknown]
  - Insurance issue [Unknown]
  - Cortisol decreased [Unknown]
  - Obesity [Unknown]

NARRATIVE: CASE EVENT DATE: 20250401
